FAERS Safety Report 15682764 (Version 3)
Quarter: 2019Q1

REPORT INFORMATION
  Report Type: Spontaneous
  Country: US (occurrence: US)
  Receive Date: 20181203
  Receipt Date: 20190109
  Transmission Date: 20190417
  Serious: No
  Sender: FDA-Public Use
  Company Number: US-ASTRAZENECA-2018SF53699

PATIENT
  Age: 627 Month
  Sex: Male
  Weight: 107.5 kg

DRUGS (1)
  1. BYDUREON [Suspect]
     Active Substance: EXENATIDE
     Indication: TYPE 2 DIABETES MELLITUS
     Route: 058
     Dates: start: 201807

REACTIONS (7)
  - Injection site pain [Unknown]
  - Intentional device misuse [Unknown]
  - Device leakage [Unknown]
  - Underdose [Unknown]
  - Product dose omission [Unknown]
  - Device use issue [Unknown]
  - Frustration tolerance decreased [Unknown]

NARRATIVE: CASE EVENT DATE: 201811
